FAERS Safety Report 4639432-5 (Version None)
Quarter: 2005Q2

REPORT INFORMATION
  Report Type: 
  Country: None (occurrence: None)
  Receive Date: 20050418
  Receipt Date: 20050411
  Transmission Date: 20051028
  Serious: Yes (Other)
  Sender: FDA-Public Use
  Company Number: 2005AL001354

PATIENT
  Age: 2 Month
  Sex: Female

DRUGS (2)
  1. METOCLOPRAMIDE [Suspect]
     Indication: GASTROOESOPHAGEAL REFLUX DISEASE
     Dosage: 2.5 ML; QID; PO
     Route: 048
  2. RANITIDINE [Concomitant]

REACTIONS (11)
  - CIRCUMSTANCE OR INFORMATION CAPABLE OF LEADING TO MEDICATION ERROR [None]
  - DRUG DISPENSING ERROR [None]
  - FEEDING PROBLEM IN CHILD [None]
  - HYPERHIDROSIS [None]
  - INSOMNIA [None]
  - IRRITABILITY [None]
  - OPISTHOTONUS [None]
  - OVERDOSE [None]
  - REFUSAL OF TREATMENT BY RELATIVE [None]
  - STARING [None]
  - TARDIVE DYSKINESIA [None]
